FAERS Safety Report 6298952-0 (Version None)
Quarter: 2009Q3

REPORT INFORMATION
  Report Type: 
  Country: None (occurrence: None)
  Receive Date: 20090806
  Receipt Date: 20090728
  Transmission Date: 20100115
  Serious: Yes (Other)
  Sender: FDA-Public Use
  Company Number: US-JNJFOC-20090709144

PATIENT
  Sex: Female

DRUGS (2)
  1. INVEGA [Suspect]
     Indication: DRUG USE FOR UNKNOWN INDICATION
     Route: 048
  2. MULTIPLE MEDICATIONS (UNSPECIFIED) [Concomitant]

REACTIONS (2)
  - AGGRESSION [None]
  - PSYCHIATRIC SYMPTOM [None]
